FAERS Safety Report 17382383 (Version 1)
Quarter: 2020Q1

REPORT INFORMATION
  Report Type: Spontaneous
  Country: US (occurrence: US)
  Receive Date: 20200206
  Receipt Date: 20200206
  Transmission Date: 20200409
  Serious: Yes (Hospitalization)
  Sender: FDA-Public Use
  Company Number: US-ASTRAZENECA-2020SE18293

PATIENT
  Sex: Male

DRUGS (2)
  1. POLY-VI-SOL WITH IRON [Concomitant]
     Active Substance: IRON\VITAMINS
  2. SYNAGIS [Suspect]
     Active Substance: PALIVIZUMAB
     Indication: RESPIRATORY SYNCYTIAL VIRUS INFECTION
     Route: 030

REACTIONS (2)
  - Dyspnoea [Unknown]
  - Rhinorrhoea [Unknown]
